FAERS Safety Report 4576792-8 (Version None)
Quarter: 2005Q1

REPORT INFORMATION
  Report Type: 
  Country: None (occurrence: None)
  Receive Date: 20050207
  Receipt Date: 20050125
  Transmission Date: 20050727
  Serious: Yes (Hospitalization)
  Sender: FDA-Public Use
  Company Number: 2004097025

PATIENT
  Sex: Female

DRUGS (1)
  1. CELEBREX [Suspect]
     Indication: ARTHRITIS
     Dosage: (200 MG)

REACTIONS (4)
  - BLOOD PRESSURE FLUCTUATION [None]
  - DEPRESSION [None]
  - DIVERTICULITIS [None]
  - GASTRITIS [None]
